FAERS Safety Report 9856608 (Version 1)
Quarter: 2014Q1

REPORT INFORMATION
  Report Type: Report from Study
  Country: JP (occurrence: JP)
  Receive Date: 20140130
  Receipt Date: 20140130
  Transmission Date: 20141002
  Serious: Yes (Other)
  Sender: FDA-Public Use
  Company Number: JP-B.I. PHARMACEUTICALS,INC./RIDGEFIELD-2014-BI-03935NB

PATIENT
  Age: 72 Year
  Sex: Male
  Weight: 82 kg

DRUGS (10)
  1. TRAZENTA [Suspect]
     Indication: TYPE 2 DIABETES MELLITUS
     Route: 065
  2. LYRICA [Concomitant]
     Route: 065
  3. ADALAT-CR [Concomitant]
     Route: 065
  4. BLOPRESS [Concomitant]
     Route: 065
  5. MAINTATE [Concomitant]
     Route: 065
  6. MEVALOTIN [Concomitant]
     Route: 065
  7. GASTER D [Concomitant]
     Route: 065
  8. BAYASPIRIN [Concomitant]
     Route: 065
  9. PLETAAL OD [Concomitant]
     Route: 065
  10. BIOFERMIN [Concomitant]
     Route: 065

REACTIONS (4)
  - Cerebral haemorrhage [Not Recovered/Not Resolved]
  - Basal ganglia haemorrhage [Not Recovered/Not Resolved]
  - Lacunar infarction [Not Recovered/Not Resolved]
  - White matter lesion [Not Recovered/Not Resolved]
